FAERS Safety Report 6920745-9 (Version None)
Quarter: 2010Q3

REPORT INFORMATION
  Report Type: 
  Country: None (occurrence: None)
  Receive Date: 20100812
  Receipt Date: 20100804
  Transmission Date: 20110219
  Serious: Yes (Other)
  Sender: FDA-Public Use
  Company Number: MX-SANOFI-AVENTIS-2010SA046362

PATIENT
  Age: 77 Year
  Sex: Female
  Weight: 120 kg

DRUGS (4)
  1. PLAVIX [Suspect]
     Indication: THROMBOSIS PROPHYLAXIS
     Route: 048
     Dates: start: 20060101, end: 20100701
  2. ASPIRIN [Concomitant]
     Indication: THROMBOSIS PROPHYLAXIS
     Route: 048
     Dates: start: 19920101
  3. AMLODIPINE/VALSARTAN [Concomitant]
     Dosage: DOSE:1 UNIT(S)
     Route: 048
     Dates: start: 20100701
  4. CONCOR [Concomitant]
     Route: 048
     Dates: start: 20100701

REACTIONS (3)
  - ANAEMIA [None]
  - LEUKAEMIA [None]
  - OFF LABEL USE [None]
